FAERS Safety Report 10684471 (Version 1)
Quarter: 2014Q4

REPORT INFORMATION
  Report Type: Spontaneous
  Country: US (occurrence: None)
  Receive Date: 20141230
  Receipt Date: 20141230
  Transmission Date: 20150529
  Serious: Yes (Other)
  Sender: FDA-Public Use
  Company Number: None

PATIENT
  Age: 51 Year
  Sex: Female
  Weight: 84.37 kg

DRUGS (1)
  1. RESTYLANE [Suspect]
     Active Substance: HYALURONIC ACID
     Indication: SKIN COSMETIC PROCEDURE
     Dosage: UPPER LOWER LIPS  GIVEN INTO/UNDER THE SKIN
     Route: 058
     Dates: start: 20141218, end: 20141218

REACTIONS (4)
  - Rhinorrhoea [None]
  - Pyrexia [None]
  - Hypersensitivity [None]
  - Type IV hypersensitivity reaction [None]

NARRATIVE: CASE EVENT DATE: 20141226
